FAERS Safety Report 7404865-0 (Version None)
Quarter: 2011Q2

REPORT INFORMATION
  Report Type: 
  Country: None (occurrence: None)
  Receive Date: 20110411
  Receipt Date: 20110328
  Transmission Date: 20111010
  Serious: Yes (Hospitalization, Other)
  Sender: FDA-Public Use
  Company Number: PT-JNJFOC-20110307837

PATIENT
  Age: 32 Year
  Sex: Male

DRUGS (7)
  1. HALOPERIDOL DECANOATE [Suspect]
     Route: 030
  2. LEVOMEPROMAZINE [Suspect]
     Indication: PRODUCT USED FOR UNKNOWN INDICATION
     Route: 030
  3. OXAZEPAM [Suspect]
     Indication: PRODUCT USED FOR UNKNOWN INDICATION
     Route: 065
  4. HALOPERIDOL DECANOATE [Suspect]
     Indication: AGGRESSION
     Route: 030
  5. QUETIAPINE [Suspect]
     Indication: PRODUCT USED FOR UNKNOWN INDICATION
     Route: 065
  6. HALOPERIDOL DECANOATE [Suspect]
     Route: 030
  7. OLANZAPINE [Suspect]
     Indication: PRODUCT USED FOR UNKNOWN INDICATION
     Route: 065

REACTIONS (5)
  - ABDOMINAL PAIN [None]
  - NEUROLEPTIC MALIGNANT SYNDROME [None]
  - ABDOMINAL DISTENSION [None]
  - MUTISM [None]
  - DIARRHOEA HAEMORRHAGIC [None]
